FAERS Safety Report 8832398 (Version 2)
Quarter: 2012Q4

REPORT INFORMATION
  Report Type: Report from Study
  Country: BR (occurrence: BR)
  Receive Date: 20121009
  Receipt Date: 20121226
  Transmission Date: 20130627
  Serious: Yes (Other)
  Sender: FDA-Public Use
  Company Number: BR-ROCHE-1137980

PATIENT
  Sex: Female
  Weight: 52 kg

DRUGS (10)
  1. RITUXIMAB [Suspect]
     Indication: RHEUMATOID ARTHRITIS
     Route: 065
     Dates: start: 20110922, end: 20120410
  2. DIOVAN HCT [Concomitant]
  3. EUTHYROX [Concomitant]
  4. DIOSMIN [Concomitant]
  5. CEBRALAT [Concomitant]
  6. OMEPRAZOLE [Concomitant]
  7. PROLOPA [Concomitant]
  8. SIMVASTATIN [Concomitant]
  9. CORTISONE [Concomitant]
  10. CALCIUM [Concomitant]

REACTIONS (5)
  - Urinary tract infection [Unknown]
  - Leukopenia [Unknown]
  - Leukocytosis [Recovered/Resolved]
  - Leukaemia [Not Recovered/Not Resolved]
  - Pneumonia [Recovered/Resolved]
